FAERS Safety Report 7638361-2 (Version None)
Quarter: 2011Q3

REPORT INFORMATION
  Report Type: 
  Country: None (occurrence: None)
  Receive Date: 20110720
  Receipt Date: 20110705
  Transmission Date: 20111222
  Serious: Yes (Other)
  Sender: FDA-Public Use
  Company Number: 2011AP001410

PATIENT
  Age: 18 Year
  Sex: Female

DRUGS (3)
  1. LAMOTRIGINE [Suspect]
     Indication: EPILEPSY
     Dosage: 175 MG; BID
  2. IMPLANON [Suspect]
     Indication: CONTRACEPTION
     Dates: start: 20100727
  3. IMPLANON [Suspect]

REACTIONS (6)
  - EPILEPSY [None]
  - FATIGUE [None]
  - DRUG INTERACTION [None]
  - DYSMENORRHOEA [None]
  - MENOMETRORRHAGIA [None]
  - INCREASED TENDENCY TO BRUISE [None]
